FAERS Safety Report 5719337-9 (Version None)
Quarter: 2008Q2

REPORT INFORMATION
  Report Type: 
  Country: None (occurrence: None)
  Receive Date: 20080428
  Receipt Date: 20080415
  Transmission Date: 20081010
  Serious: Yes (Hospitalization, Other)
  Sender: FDA-Public Use
  Company Number: US-ELI_LILLY_AND_COMPANY-US200706000550

PATIENT
  Age: 66 Year
  Sex: Female

DRUGS (3)
  1. FORTEO [Suspect]
     Indication: OSTEOPOROSIS
     Dosage: UNK, UNK
     Dates: start: 20050501, end: 20060101
  2. FORTEO [Suspect]
     Dates: start: 20080401
  3. VITAMIN B-12 [Concomitant]

REACTIONS (4)
  - FALL [None]
  - HIP FRACTURE [None]
  - MEDICAL DEVICE COMPLICATION [None]
  - PELVIC FRACTURE [None]
